FAERS Safety Report 8674699 (Version 2)
Quarter: 2012Q4

REPORT INFORMATION
  Report Type: 
  Country: CN (occurrence: CN)
  Receive Date: 20120720
  Receipt Date: 20121022
  Transmission Date: 20130627
  Serious: Yes (Other)
  Sender: FDA-Public Use
  Company Number: CN-JNJFOC-20120708131

PATIENT

DRUGS (1)
  1. REMICADE [Suspect]
     Indication: ANKYLOSING SPONDYLITIS
     Dosage: after the irst dose, infused at week 2, 6 and every 9 weeks thereafter
     Route: 042

REACTIONS (3)
  - Suffocation feeling [Recovered/Resolved]
  - Dermatitis allergic [Recovered/Resolved]
  - Infusion related reaction [Recovered/Resolved]
